FAERS Safety Report 8232725-4 (Version None)
Quarter: 2012Q1

REPORT INFORMATION
  Report Type: 
  Country: None (occurrence: None)
  Receive Date: 20120323
  Receipt Date: 20120316
  Transmission Date: 20120608
  Serious: Yes (Hospitalization)
  Sender: FDA-Public Use
  Company Number: JP-ABBOTT-12P-087-0908375-00

PATIENT
  Sex: Female
  Weight: 43 kg

DRUGS (6)
  1. METHOTREXATE [Suspect]
     Indication: RHEUMATOID ARTHRITIS
     Dosage: WEEKLY DOSE: 6MG
     Route: 048
     Dates: start: 20030301, end: 20120201
  2. ALENDRONATE SODIUM [Concomitant]
     Indication: OSTEOPOROSIS
     Dosage: WEEKLY DOSE: 35MG
     Route: 048
     Dates: start: 20110324, end: 20120201
  3. HUMIRA [Suspect]
     Indication: RHEUMATOID ARTHRITIS
     Route: 058
     Dates: start: 20091005, end: 20120213
  4. LOXOPROFEN SODIUM HYDRATE [Concomitant]
     Indication: RHEUMATOID ARTHRITIS
     Dosage: DAILY DOSE: 2 DOSAGE FORMS
     Route: 048
     Dates: start: 20090801
  5. LORATADINE [Concomitant]
     Indication: RHINITIS
     Dosage: DAILY DOSE: 10MG
     Route: 048
     Dates: start: 20120201
  6. CALCIUM FOLINATE [Concomitant]
     Indication: RHEUMATOID ARTHRITIS
     Route: 048
     Dates: start: 20030301, end: 20120201

REACTIONS (8)
  - VIRAL INFECTION [None]
  - CSF MONONUCLEAR CELL COUNT INCREASED [None]
  - FEELING ABNORMAL [None]
  - MOTOR DYSFUNCTION [None]
  - HEADACHE [None]
  - ALTERED STATE OF CONSCIOUSNESS [None]
  - APHASIA [None]
  - MEMORY IMPAIRMENT [None]
